FAERS Safety Report 11591846 (Version 2)
Quarter: 2016Q2

REPORT INFORMATION
  Report Type: Spontaneous
  Country: US (occurrence: US)
  Receive Date: 20151005
  Receipt Date: 20160401
  Transmission Date: 20160815
  Serious: Yes (Hospitalization)
  Sender: FDA-Public Use
  Company Number: US-ACCORD-034066

PATIENT
  Age: 66 Year
  Sex: Male

DRUGS (4)
  1. LEUPRORELIN/LEUPRORELIN ACETATE [Suspect]
     Active Substance: LEUPROLIDE ACETATE
     Indication: PRODUCT USED FOR UNKNOWN INDICATION
     Route: 058
  2. ETOPOSIDE. [Suspect]
     Active Substance: ETOPOSIDE
     Indication: PRODUCT USED FOR UNKNOWN INDICATION
     Dosage: DAILY X 3
     Route: 042
  3. CISPLATIN. [Suspect]
     Active Substance: CISPLATIN
     Indication: PRODUCT USED FOR UNKNOWN INDICATION
     Dosage: CYCLE 6 TREATMENT
  4. DENOSUMAB [Suspect]
     Active Substance: DENOSUMAB
     Indication: PRODUCT USED FOR UNKNOWN INDICATION
     Dosage: 120 MG SC (INITIAL DOSE)
     Route: 058

REACTIONS (5)
  - Hypocalcaemia [Unknown]
  - Anaemia [Unknown]
  - Asthenia [Unknown]
  - Hypomagnesaemia [Unknown]
  - Muscle spasms [Unknown]
